FAERS Safety Report 9490866 (Version 1)
Quarter: 2013Q3

REPORT INFORMATION
  Report Type: Spontaneous
  Country: US (occurrence: US)
  Receive Date: 20130830
  Receipt Date: 20130830
  Transmission Date: 20140515
  Serious: No
  Sender: FDA-Public Use
  Company Number: US-PFIZER INC-2013248197

PATIENT
  Age: 60 Year
  Sex: Female
  Weight: 127 kg

DRUGS (6)
  1. ARTHROTEC [Suspect]
     Indication: ARTHRITIS
     Dosage: 50MG/200MCG TWO TIMES A DAY
  2. ARTHROTEC [Suspect]
     Dosage: 50MG/200MCG EVERY ALTERNATE DAY
     Dates: start: 201308
  3. METFORMIN [Concomitant]
     Indication: DIABETES MELLITUS
     Dosage: 500 MG, UNK
     Route: 048
  4. ATENOLOL [Concomitant]
     Indication: HYPERTENSION
     Dosage: 25 MG, DAILY
  5. LASIX [Concomitant]
     Indication: HYPERTENSION
     Dosage: 40 MG, DAILY
  6. LISINOPRIL [Concomitant]
     Indication: HYPERTENSION
     Dosage: 5 MG, DAILY

REACTIONS (2)
  - Swelling [Unknown]
  - Inappropriate schedule of drug administration [Unknown]
